FAERS Safety Report 8228597-4 (Version None)
Quarter: 2012Q1

REPORT INFORMATION
  Report Type: 
  Country: None (occurrence: None)
  Receive Date: 20120322
  Receipt Date: 20110505
  Transmission Date: 20120608
  Serious: Yes (Hospitalization)
  Sender: FDA-Public Use
  Company Number: US-BRISTOL-MYERS SQUIBB COMPANY-15621451

PATIENT
  Age: 52 Year
  Sex: Female

DRUGS (12)
  1. MAGNESIUM SULFATE [Concomitant]
     Route: 042
  2. ZOFRAN [Concomitant]
     Indication: NAUSEA
  3. DIPHENOXYLATE [Concomitant]
     Indication: NAUSEA
     Dosage: PRN
  4. ERBITUX [Suspect]
     Indication: COLON CANCER
     Dosage: 200 MG VIAL 800 MG LOADING DOSE,OVER 2 HOURS 18MAR-18MAR11(LOADING DOSE-800MG),25MAR11(500MG)/W
     Route: 042
     Dates: start: 20110318
  5. DIPHENHYDRAMINE HCL [Concomitant]
     Dosage: DIPHENHYDRAMINE IV
     Route: 042
     Dates: start: 20110318
  6. GABAPENTIN [Concomitant]
  7. PROCHLORPERAZINE [Concomitant]
     Indication: NAUSEA
     Dosage: PRN
  8. ACETAMINOPHEN [Concomitant]
     Route: 048
     Dates: start: 20110318
  9. HYDROCODONE BITARTRATE [Concomitant]
     Indication: PAIN
     Dosage: 1 DF = 5/500 1 TAB PRN
  10. INDOMETHACIN [Concomitant]
  11. AMBIEN [Concomitant]
     Dosage: BEDTIME
  12. METFORMIN HCL [Concomitant]
     Dosage: 3 TABLETS AT BEDTIME

REACTIONS (1)
  - MENINGITIS ASEPTIC [None]
